FAERS Safety Report 19735303 (Version 1)
Quarter: 2021Q3

REPORT INFORMATION
  Report Type: Spontaneous
  Country: IR (occurrence: IR)
  Receive Date: 20210823
  Receipt Date: 20210823
  Transmission Date: 20211014
  Serious: Yes (Hospitalization)
  Sender: FDA-Public Use
  Company Number: IR-JUBILANT CADISTA PHARMACEUTICALS-2021JUB00243

PATIENT
  Age: 25 Year
  Sex: Female

DRUGS (2)
  1. METHYLPREDNISOLONE. [Suspect]
     Active Substance: METHYLPREDNISOLONE
     Indication: MULTIPLE SCLEROSIS
     Dosage: 1 G, 1X/DAY
     Route: 042
     Dates: start: 201905
  2. METHYLPREDNISOLONE. [Suspect]
     Active Substance: METHYLPREDNISOLONE
     Dosage: 1 G, 1X/DAY
     Route: 042
     Dates: start: 201910

REACTIONS (1)
  - Acute respiratory distress syndrome [Recovered/Resolved]
